FAERS Safety Report 17428559 (Version 1)
Quarter: 2020Q1

REPORT INFORMATION
  Report Type: Spontaneous
  Country: TR (occurrence: TR)
  Receive Date: 20200217
  Receipt Date: 20200217
  Transmission Date: 20200409
  Serious: Yes (Other)
  Sender: FDA-Public Use
  Company Number: NVSC2020TR032606

PATIENT
  Age: 68 Year
  Sex: Male

DRUGS (1)
  1. CO-DIOVAN [Suspect]
     Active Substance: HYDROCHLOROTHIAZIDE\VALSARTAN
     Indication: PRODUCT USED FOR UNKNOWN INDICATION
     Dosage: 172.5 MG (160 MG/12.5 MG)
     Route: 065

REACTIONS (2)
  - Drug ineffective [Unknown]
  - Hypertension [Unknown]
